FAERS Safety Report 25325199 (Version 4)
Quarter: 2025Q3

REPORT INFORMATION
  Report Type: Spontaneous
  Country: US (occurrence: US)
  Receive Date: 20250516
  Receipt Date: 20250820
  Transmission Date: 20251021
  Serious: Yes (Hospitalization)
  Sender: ROCHE
  Company Number: US-ROCHE-10000286267

PATIENT
  Age: 70 Year
  Sex: Female

DRUGS (2)
  1. MYCOPHENOLATE MOFETIL [Suspect]
     Active Substance: MYCOPHENOLATE MOFETIL
     Indication: Gout
     Route: 065
  2. PEGLOTICASE [Suspect]
     Active Substance: PEGLOTICASE
     Indication: Gout
     Route: 065

REACTIONS (5)
  - Disseminated varicella zoster virus infection [Recovering/Resolving]
  - Varicella zoster sepsis [Recovering/Resolving]
  - Diabetic ketoacidosis [Unknown]
  - Septic shock [Recovering/Resolving]
  - Cytomegalovirus infection [Unknown]
